FAERS Safety Report 24700611 (Version 2)
Quarter: 2025Q1

REPORT INFORMATION
  Report Type: Spontaneous
  Country: US (occurrence: US)
  Receive Date: 20241205
  Receipt Date: 20250113
  Transmission Date: 20250409
  Serious: Yes (Hospitalization)
  Sender: BRISTOL-MYERS SQUIBB COMPANY
  Company Number: US-BRISTOL-MYERS SQUIBB COMPANY-2024-188343

PATIENT
  Age: 66 Year
  Sex: Male
  Weight: 94.35 kg

DRUGS (1)
  1. REVLIMID [Suspect]
     Active Substance: LENALIDOMIDE
     Indication: Plasma cell myeloma
     Dosage: 3WKSON/1WKOFF?ONCE DAILY FOR 21 DAYS ON THEN 7 DAYS OFF
     Route: 048
     Dates: start: 202001, end: 202411

REACTIONS (1)
  - Hospitalisation [Recovering/Resolving]
